FAERS Safety Report 5315929-X (Version None)
Quarter: 2007Q2

REPORT INFORMATION
  Report Type: 
  Country: None (occurrence: None)
  Receive Date: 20070503
  Receipt Date: 20070419
  Transmission Date: 20071010
  Serious: Yes (Life-Threatening, Other)
  Sender: FDA-Public Use
  Company Number: JP-ROCHE-430760

PATIENT
  Age: 16 Year
  Sex: Male
  Weight: 62 kg

DRUGS (5)
  1. TAMIFLU [Suspect]
     Dosage: TAKEN ON 27 DEC 2005 ON 22:22 AND ON 28 DEC 2005 IN THE MORNING.
     Route: 048
     Dates: start: 20051227, end: 20051228
  2. ACETAMINOPHEN [Concomitant]
     Route: 048
     Dates: start: 20051227, end: 20051228
  3. PA [Concomitant]
     Route: 048
     Dates: start: 20051227, end: 20051228
  4. DASEN [Concomitant]
     Route: 048
     Dates: start: 20051227, end: 20051228
  5. EVE-A [Concomitant]
     Dosage: REPORTED AS EVE.
     Route: 048

REACTIONS (2)
  - ABNORMAL BEHAVIOUR [None]
  - AGITATION [None]
